FAERS Safety Report 8312901-2 (Version None)
Quarter: 2012Q2

REPORT INFORMATION
  Report Type: 
  Country: None (occurrence: None)
  Receive Date: 20120424
  Receipt Date: 20120412
  Transmission Date: 20120825
  Serious: Yes (Other)
  Sender: FDA-Public Use
  Company Number: GER/UKI/12/0023393

PATIENT
  Age: 71 Year
  Sex: Female

DRUGS (13)
  1. LANSOPRAZOLE [Concomitant]
  2. PIPERACILLIN AND TAZOBACTAM [Suspect]
     Indication: PRODUCT USED FOR UNKNOWN INDICATION
     Dosage: 4.5 GM, INTRAVENOUS DRIP
     Route: 041
     Dates: start: 20120221, end: 20120222
  3. NITROFURANTOIN [Concomitant]
  4. CIPROFLOXACIN [Suspect]
     Indication: PRODUCT USED FOR UNKNOWN INDICATION
     Dosage: 750 MG, 2 IN 1 D, ORAL
     Route: 048
     Dates: start: 20120110, end: 20120111
  5. BISOPROLOL FUMARATE [Concomitant]
  6. MAGNESIUM L-ASPARTATE HYDROCHLORIDE (MAGNESIUM ASPARTATE) [Suspect]
     Indication: HYPOMAGNESAEMIA
     Dosage: 10 MILLIMOL, 1 IN 1 D, ORAL
     Route: 048
     Dates: start: 20120113, end: 20120209
  7. MAGNESIUM SULPHATE (MAGNESIUM SULPHATE) [Concomitant]
  8. TEICOPLANIN (TEICOPLANIN) [Concomitant]
  9. CIPROFLOXACIN [Suspect]
     Indication: PRODUCT USED FOR UNKNOWN INDICATION
     Dosage: 600 MG., 2 IN 1 D, INTRAVENOUS
     Route: 042
     Dates: start: 20120111, end: 20120206
  10. ASPIRIN [Concomitant]
  11. FERROUS SULFATE TAB [Concomitant]
  12. NICORANDIL (NICORANDIL) [Concomitant]
  13. FUROSEMIDE [Concomitant]

REACTIONS (7)
  - PARAESTHESIA [None]
  - RASH MACULO-PAPULAR [None]
  - PROTEUS TEST POSITIVE [None]
  - RASH ERYTHEMATOUS [None]
  - SKIN WARM [None]
  - PRODUCT CONTAMINATION MICROBIAL [None]
  - RASH PRURITIC [None]
